FAERS Safety Report 20333938 (Version 1)
Quarter: 2022Q1

REPORT INFORMATION
  Report Type: Spontaneous
  Country: US (occurrence: US)
  Receive Date: 20220113
  Receipt Date: 20220113
  Transmission Date: 20220423
  Serious: No
  Sender: FDA-Public Use
  Company Number: US-EVOKE PHARMA, INC.-2021EVO000140

PATIENT

DRUGS (5)
  1. GIMOTI [Suspect]
     Active Substance: METOCLOPRAMIDE HYDROCHLORIDE
     Indication: Impaired gastric emptying
     Dosage: 15 MG, QID, 1 SPRAY IN ONE NOSTRIL, 30 MINUTES BEFORE EACH MEAL.
     Route: 045
     Dates: start: 20211015, end: 20211017
  2. AFRIN                              /00070001/ [Concomitant]
     Indication: Product used for unknown indication
     Dosage: UNK
     Route: 045
  3. REGLAN                             /00041901/ [Concomitant]
     Indication: Product used for unknown indication
     Dosage: UNK
     Route: 048
  4. PHENERGAN                          /00033001/ [Concomitant]
     Indication: Product used for unknown indication
     Dosage: UNK
     Route: 048
  5. DONNATAL [Concomitant]
     Active Substance: ATROPINE SULFATE\HYOSCYAMINE SULFATE\PHENOBARBITAL\SCOPOLAMINE HYDROBROMIDE
     Indication: Product used for unknown indication
     Dosage: UNK

REACTIONS (19)
  - Sneezing [Recovered/Resolved]
  - Chest pain [Recovered/Resolved]
  - Pruritus [Recovered/Resolved]
  - Oral discomfort [Recovered/Resolved]
  - Lip blister [Recovered/Resolved]
  - Oral mucosal blistering [Recovered/Resolved]
  - Illness [Recovered/Resolved]
  - Fall [Recovered/Resolved]
  - Contusion [Recovered/Resolved]
  - Loss of consciousness [Recovered/Resolved]
  - Joint swelling [Recovered/Resolved]
  - Flushing [Unknown]
  - Dizziness [Recovered/Resolved]
  - Nausea [Recovered/Resolved]
  - Drug hypersensitivity [Unknown]
  - Rash [Unknown]
  - Peripheral swelling [Recovered/Resolved]
  - Drug ineffective [Unknown]
  - Product use complaint [Unknown]

NARRATIVE: CASE EVENT DATE: 20210101
